FAERS Safety Report 8581982-3 (Version None)
Quarter: 2012Q3

REPORT INFORMATION
  Report Type: 
  Country: None (occurrence: None)
  Receive Date: 20120809
  Receipt Date: 20120731
  Transmission Date: 20120928
  Serious: No
  Sender: FDA-Public Use
  Company Number: US-ASTRAZENECA-2012SE54330

PATIENT
  Age: 62 Year
  Sex: Male
  Weight: 86.2 kg

DRUGS (3)
  1. ASPIRIN [Concomitant]
  2. NEXIUM [Suspect]
     Indication: INFLAMMATION
     Route: 048
  3. IMODIUM [Concomitant]

REACTIONS (2)
  - OFF LABEL USE [None]
  - DRUG INEFFECTIVE FOR UNAPPROVED INDICATION [None]
